FAERS Safety Report 9236896 (Version 1)
Quarter: 2013Q2

REPORT INFORMATION
  Report Type: Spontaneous
  Country: DE (occurrence: DE)
  Receive Date: 20130417
  Receipt Date: 20130417
  Transmission Date: 20140414
  Serious: Yes (Other)
  Sender: FDA-Public Use
  Company Number: DE-PFIZER INC-2013118841

PATIENT
  Sex: Male

DRUGS (5)
  1. LYRICA [Suspect]
     Dosage: 25 MG, UNK
  2. RAMIPRIL [Suspect]
     Dosage: UNK
  3. NITRENDIPINE [Suspect]
     Dosage: UNK
  4. ATACAND [Suspect]
     Dosage: UNK
  5. DICLOFENAC [Suspect]
     Dosage: UNK

REACTIONS (4)
  - Hypertensive crisis [Unknown]
  - Tremor [Unknown]
  - Nervousness [Unknown]
  - Drug interaction [Unknown]
